FAERS Safety Report 11485071 (Version 1)
Quarter: 2015Q3

REPORT INFORMATION
  Report Type: Spontaneous
  Country: US (occurrence: US)
  Receive Date: 20150903
  Receipt Date: 20150903
  Transmission Date: 20151125
  Serious: No
  Sender: FDA-Public Use
  Company Number: US-ELI_LILLY_AND_COMPANY-US201206001727

PATIENT
  Sex: Female

DRUGS (2)
  1. CYMBALTA [Suspect]
     Active Substance: DULOXETINE HYDROCHLORIDE
     Dosage: 20 MG, QOD
     Dates: start: 20120607
  2. CYMBALTA [Suspect]
     Active Substance: DULOXETINE HYDROCHLORIDE
     Indication: BRACHIORADIAL PRURITUS
     Dosage: 20 MG, QD

REACTIONS (9)
  - Drug administration error [Unknown]
  - Influenza like illness [Unknown]
  - Intentional product misuse [Not Recovered/Not Resolved]
  - Malaise [Unknown]
  - Headache [Unknown]
  - Drug withdrawal syndrome [Unknown]
  - Dizziness [Unknown]
  - Feeling abnormal [Unknown]
  - Product use issue [Not Recovered/Not Resolved]
